FAERS Safety Report 25200509 (Version 1)
Quarter: 2025Q2

REPORT INFORMATION
  Report Type: Spontaneous
  Country: US (occurrence: US)
  Receive Date: 20250415
  Receipt Date: 20250415
  Transmission Date: 20250716
  Serious: No
  Sender: DUCHESNAY
  Company Number: US-MIMS-DUC-2025-US-00069

PATIENT

DRUGS (1)
  1. OSPHENA [Suspect]
     Active Substance: OSPEMIFENE
     Indication: Product used for unknown indication
     Dates: start: 2024

REACTIONS (2)
  - Palpitations [Unknown]
  - Product odour abnormal [Unknown]
